FAERS Safety Report 8469486-X (Version None)
Quarter: 2012Q2

REPORT INFORMATION
  Report Type: 
  Country: None (occurrence: None)
  Receive Date: 20120626
  Receipt Date: 20120614
  Transmission Date: 20120825
  Serious: Yes (Death, Hospitalization, Other)
  Sender: FDA-Public Use
  Company Number: US-ACTELION-A-NJ2009-25627

PATIENT

DRUGS (1)
  1. TRACLEER [Suspect]
     Indication: PULMONARY ARTERIAL HYPERTENSION
     Dosage: UNK
     Route: 048
     Dates: start: 20090428

REACTIONS (9)
  - LIMB DISCOMFORT [None]
  - SCLERODERMA [None]
  - DEATH [None]
  - POLYP [None]
  - HYPOXIA [None]
  - FLUID RETENTION [None]
  - PULMONARY ARTERIAL HYPERTENSION [None]
  - RENAL ATROPHY [None]
  - OESOPHAGEAL HAEMORRHAGE [None]
